FAERS Safety Report 5305606-3 (Version None)
Quarter: 2007Q2

REPORT INFORMATION
  Report Type: 
  Country: None (occurrence: None)
  Receive Date: 20070419
  Receipt Date: 20070419
  Transmission Date: 20071010
  Serious: Yes (Life-Threatening)
  Sender: FDA-Public Use
  Company Number: None

PATIENT
  Age: 41 Year
  Sex: Female
  Weight: 68.0396 kg

DRUGS (26)
  1. ONE A DAY WEIGHT  SMART ADVANCED     BAYER HEALTH CARE LLC [Suspect]
     Indication: VITAMIN SUPPLEMENTATION
     Dosage: 1 PILL    ONCE   PO
     Route: 048
     Dates: start: 20070417, end: 20070417
  2. ALAVERT [Concomitant]
  3. LORATADINE [Concomitant]
  4. PROTONIX [Concomitant]
  5. RESPAIR [Concomitant]
  6. INTAL [Concomitant]
  7. QVAR 40 [Concomitant]
  8. NASACORT [Concomitant]
  9. COQ-10 [Concomitant]
  10. FEVERFEW [Concomitant]
  11. GLUCOPHAGE [Concomitant]
  12. FLAX SEED OIL [Concomitant]
  13. EVENING PRIMROSE OIL [Concomitant]
  14. FAMVIR [Concomitant]
  15. ALBUTEROL [Concomitant]
  16. SINGULAIR [Concomitant]
  17. TOPAMAX [Concomitant]
  18. TIZANIDINE HCL [Concomitant]
  19. PERIACTIN [Concomitant]
  20. IMITREX SHOT [Concomitant]
  21. IMITREX [Concomitant]
  22. DESOXIMETASONE [Concomitant]
  23. DIPROPIONATE [Concomitant]
  24. ADVIL [Concomitant]
  25. EPIPEN [Concomitant]
  26. FLEX AIDE [Concomitant]

REACTIONS (5)
  - DRUG HYPERSENSITIVITY [None]
  - IMPAIRED WORK ABILITY [None]
  - LARYNGITIS [None]
  - NO THERAPEUTIC RESPONSE [None]
  - PHARMACEUTICAL PRODUCT COMPLAINT [None]
